FAERS Safety Report 7149731-3 (Version None)
Quarter: 2010Q4

REPORT INFORMATION
  Report Type: 
  Country: None (occurrence: None)
  Receive Date: 20101210
  Receipt Date: 20101130
  Transmission Date: 20110411
  Serious: Yes (Hospitalization)
  Sender: FDA-Public Use
  Company Number: US-BIOGENIDEC-2009BI008264

PATIENT
  Age: 46 Year
  Sex: Male
  Weight: 68 kg

DRUGS (7)
  1. AVONEX [Suspect]
     Indication: MULTIPLE SCLEROSIS
     Route: 030
     Dates: start: 20071031
  2. AVONEX [Suspect]
     Route: 030
     Dates: start: 20090116
  3. AVONEX [Suspect]
     Route: 030
     Dates: start: 20061124, end: 20070701
  4. MIGRAINE MEDICATON (NOS) [Concomitant]
     Indication: PRODUCT USED FOR UNKNOWN INDICATION
  5. SEROQUEL [Concomitant]
     Indication: PRODUCT USED FOR UNKNOWN INDICATION
  6. PRIMIDONE [Concomitant]
     Indication: TREMOR
  7. PRIMIDONE [Concomitant]

REACTIONS (16)
  - ALCOHOLISM [None]
  - ANXIETY [None]
  - BALANCE DISORDER [None]
  - BURNOUT SYNDROME [None]
  - COMA [None]
  - DEPRESSION [None]
  - DISTRACTIBILITY [None]
  - DRUG ABUSE [None]
  - DYSGRAPHIA [None]
  - DYSPHEMIA [None]
  - GAIT DISTURBANCE [None]
  - INFLUENZA LIKE ILLNESS [None]
  - MIGRAINE [None]
  - STRESS [None]
  - SUICIDE ATTEMPT [None]
  - TREMOR [None]
